FAERS Safety Report 19817354 (Version 1)
Quarter: 2021Q3

REPORT INFORMATION
  Report Type: Spontaneous
  Country: US (occurrence: US)
  Receive Date: 20210910
  Receipt Date: 20210910
  Transmission Date: 20211014
  Serious: Yes (Other)
  Sender: FDA-Public Use
  Company Number: US-PFIZER INC-202101111809

PATIENT
  Sex: Female

DRUGS (2)
  1. RUXIENCE [Suspect]
     Active Substance: RITUXIMAB-PVVR
     Dosage: 17 MG (17MG GIVEN)
     Dates: start: 20210813, end: 20210813
  2. RUXIENCE [Suspect]
     Active Substance: RITUXIMAB-PVVR
     Dosage: UNK (50ML/HR INFUSION) (17 MG (17MG GIVEN))
     Dates: start: 20210806

REACTIONS (10)
  - Vomiting [Recovered/Resolved]
  - Flushing [Recovered/Resolved]
  - Hypotension [Unknown]
  - Dyspnoea [Recovered/Resolved]
  - Oropharyngeal discomfort [Unknown]
  - Rales [Unknown]
  - Nausea [Recovered/Resolved]
  - Flushing [Unknown]
  - Chest discomfort [Recovered/Resolved]
  - Throat tightness [Recovered/Resolved]

NARRATIVE: CASE EVENT DATE: 20210806
